FAERS Safety Report 10709534 (Version 4)
Quarter: 2017Q4

REPORT INFORMATION
  Report Type: Spontaneous
  Country: US (occurrence: US)
  Receive Date: 20150114
  Receipt Date: 20171213
  Transmission Date: 20180320
  Serious: Yes (Hospitalization)
  Sender: FDA-Public Use
  Company Number: US-009507513-1110USA03483

PATIENT
  Sex: Male
  Weight: 85.26 kg

DRUGS (1)
  1. PROPECIA [Suspect]
     Active Substance: FINASTERIDE
     Indication: ALOPECIA
     Dosage: 1 MG, QD
     Route: 048
     Dates: start: 200007, end: 2008

REACTIONS (31)
  - Bronchitis [Unknown]
  - Upper respiratory tract infection [Unknown]
  - Oropharyngeal pain [Unknown]
  - Urethritis [Unknown]
  - Libido decreased [Not Recovered/Not Resolved]
  - Varicella [Unknown]
  - Exposure to communicable disease [Unknown]
  - Back pain [Unknown]
  - Lymphadenopathy [Unknown]
  - Hypogonadism [Unknown]
  - Blood thyroid stimulating hormone increased [Unknown]
  - Dysuria [Unknown]
  - Dry skin [Unknown]
  - Rash [Unknown]
  - Depression [Unknown]
  - Ejaculation disorder [Unknown]
  - Nasal septum deviation [Unknown]
  - Sexual dysfunction [Unknown]
  - Dysuria [Unknown]
  - Anxiety [Unknown]
  - Cognitive disorder [Unknown]
  - Abdominal pain [Unknown]
  - Exposure to body fluid [Unknown]
  - Rash pustular [Unknown]
  - Tonsillectomy [Unknown]
  - Arthropod bite [Unknown]
  - Incisional drainage [Unknown]
  - Erectile dysfunction [Not Recovered/Not Resolved]
  - Ejaculation failure [Unknown]
  - Nasal turbinate hypertrophy [Unknown]
  - Rib fracture [Unknown]

NARRATIVE: CASE EVENT DATE: 2000
